FAERS Safety Report 13067901 (Version 1)
Quarter: 2016Q4

REPORT INFORMATION
  Report Type: Spontaneous
  Country: US (occurrence: US)
  Receive Date: 20161227
  Receipt Date: 20161227
  Transmission Date: 20170207
  Serious: No
  Sender: FDA-Public Use
  Company Number: None

PATIENT
  Age: 52 Year
  Sex: Male

DRUGS (1)
  1. CAPECITABINE 500MG TEVA PHARMACEUTICALS USA INC [Suspect]
     Active Substance: CAPECITABINE
     Indication: NEUROENDOCRINE CARCINOMA
     Dosage: 3 TABLETS TWICE A DAY ON DAYS 1-14 EVERY 28 DAYS BY MOUTH
     Route: 048
     Dates: start: 20160122

REACTIONS (3)
  - Agitation [None]
  - Anger [None]
  - Impatience [None]

NARRATIVE: CASE EVENT DATE: 20160919
